FAERS Safety Report 20424563 (Version 1)
Quarter: 2022Q1

REPORT INFORMATION
  Report Type: Report from Study
  Country: US (occurrence: US)
  Receive Date: 20220203
  Receipt Date: 20220203
  Transmission Date: 20220423
  Serious: No
  Sender: FDA-Public Use
  Company Number: US-EXELIXIS-CABO-20035723

PATIENT
  Age: 56 Year
  Sex: Male

DRUGS (9)
  1. CABOMETYX [Suspect]
     Active Substance: CABOZANTINIB S-MALATE
     Indication: Renal cancer
     Dosage: 40 MG, QD
     Route: 048
     Dates: start: 202011, end: 202101
  2. KEPPRA [Concomitant]
     Active Substance: LEVETIRACETAM
  3. LIPITOR [Concomitant]
     Active Substance: ATORVASTATIN CALCIUM
  4. NEURONTIN [Concomitant]
     Active Substance: GABAPENTIN
  5. SYNTHROID [Concomitant]
     Active Substance: LEVOTHYROXINE SODIUM
  6. TOPROL XL [Concomitant]
     Active Substance: METOPROLOL SUCCINATE
  7. TRICOR [Concomitant]
     Active Substance: FENOFIBRATE
  8. ZOFRAN [Concomitant]
     Active Substance: ONDANSETRON HYDROCHLORIDE
  9. ZYPREXA [Concomitant]
     Active Substance: OLANZAPINE

REACTIONS (8)
  - Flushing [Unknown]
  - Diarrhoea [Not Recovered/Not Resolved]
  - Constipation [Unknown]
  - Hypertension [Not Recovered/Not Resolved]
  - Fatigue [Unknown]
  - Decreased appetite [Unknown]
  - Dehydration [Not Recovered/Not Resolved]
  - Rash [Not Recovered/Not Resolved]

NARRATIVE: CASE EVENT DATE: 20201127
